FAERS Safety Report 4329257-2 (Version None)
Quarter: 2004Q1

REPORT INFORMATION
  Report Type: 
  Country: None (occurrence: None)
  Receive Date: 20040319
  Receipt Date: 20031204
  Transmission Date: 20041129
  Serious: No
  Sender: FDA-Public Use
  Company Number: US-JNJFOC-20030602680

PATIENT
  Age: 28 Year
  Sex: Female
  Weight: 70.7611 kg

DRUGS (1)
  1. ORTHO EVRA [Suspect]
     Indication: CONTRACEPTION
     Dosage: 1 DOSE (S), 1 IN 1 DAY, TRANSDERMAL
     Route: 062
     Dates: start: 20030613, end: 20030614

REACTIONS (3)
  - HOT FLUSH [None]
  - NAUSEA [None]
  - VOMITING [None]
